FAERS Safety Report 15859544 (Version 1)
Quarter: 2019Q1

REPORT INFORMATION
  Report Type: Spontaneous
  Country: DK (occurrence: DK)
  Receive Date: 20190123
  Receipt Date: 20190123
  Transmission Date: 20190417
  Serious: Yes (Life-Threatening)
  Sender: FDA-Public Use
  Company Number: PHHY2019DK014516

PATIENT
  Age: 84 Year
  Sex: Female
  Weight: 63 kg

DRUGS (5)
  1. ACLASTA [Suspect]
     Active Substance: ZOLEDRONIC ACID
     Indication: OSTEOPOROSIS POSTMENOPAUSAL
     Dosage: 5 MG, UNK (TOTAL)
     Route: 042
     Dates: start: 20171108
  2. VAGIFEM [Concomitant]
     Active Substance: ESTRADIOL
     Indication: MUCOSAL DRYNESS
     Dosage: STYRKE: UKENDT.
     Route: 067
  3. CANDEMOX [Concomitant]
     Active Substance: CANDESARTAN CILEXETIL
     Indication: HYPERTENSION
     Dosage: STYRKE: UKENDT.
     Route: 048
  4. IMOZOP [Concomitant]
     Active Substance: ZOPICLONE
     Indication: INSOMNIA
     Dosage: STYRKE: UKENDT. DOSIS: PN.
     Route: 048
  5. OMEPRAZOL ACTAVIS [Concomitant]
     Active Substance: OMEPRAZOLE
     Indication: GASTRIC PH DECREASED
     Dosage: STYRKE: UKENDT.
     Route: 048

REACTIONS (3)
  - Cerebral haemorrhage [Recovered/Resolved with Sequelae]
  - Atrial fibrillation [Not Recovered/Not Resolved]
  - Malaise [Not Recovered/Not Resolved]

NARRATIVE: CASE EVENT DATE: 20171116
